FAERS Safety Report 4901516-1 (Version None)
Quarter: 2006Q1

REPORT INFORMATION
  Report Type: 
  Country: None (occurrence: None)
  Receive Date: 20060203
  Receipt Date: 20060203
  Transmission Date: 20060701
  Serious: No
  Sender: FDA-Public Use
  Company Number: None

PATIENT
  Age: 59 Year
  Sex: Male
  Weight: 130.1823 kg

DRUGS (4)
  1. LANTUS [Suspect]
     Indication: DIABETES MELLITUS NON-INSULIN-DEPENDENT
     Dosage: 118 U DAILY SQ
     Route: 058
     Dates: start: 20051229, end: 20060201
  2. OPTICLICK PEN SANOFI AVENTIS [Suspect]
     Dates: start: 20051229, end: 20060201
  3. LANTUS [Concomitant]
  4. OPTICLIK INSULIN [Concomitant]

REACTIONS (3)
  - DEVICE FAILURE [None]
  - DIABETES MELLITUS INADEQUATE CONTROL [None]
  - PHARMACEUTICAL PRODUCT COMPLAINT [None]
